FAERS Safety Report 8369834-5 (Version None)
Quarter: 2012Q1

REPORT INFORMATION
  Report Type: 
  Country: None (occurrence: None)
  Receive Date: 20120323
  Receipt Date: 20110914
  Transmission Date: 20120608
  Serious: Yes (Hospitalization)
  Sender: FDA-Public Use
  Company Number: 163-21880-11081071

PATIENT
  Age: 89 Year
  Sex: Female

DRUGS (18)
  1. ATIVAN [Concomitant]
  2. GENERLAC (LACTULOSE) [Concomitant]
  3. LASIX [Concomitant]
  4. LEVOXYL [Concomitant]
  5. PRAMIPEXOLE DIHYDROCHLORIDE [Concomitant]
  6. MULTI-VITAMINS [Concomitant]
  7. AMITRIPTYLIN (AMITRIPTYLINE HYDROCHLORIDE) [Concomitant]
  8. DECADRON [Concomitant]
  9. AMYLODIPINE (AMLODIPINE) [Concomitant]
  10. ATENOLOL [Concomitant]
  11. PANTOPRAZOLE [Concomitant]
  12. TENORMIN [Concomitant]
  13. VALSARTAN [Concomitant]
  14. LIDODERM [Concomitant]
  15. ROXICODONE [Concomitant]
  16. REVLIMID [Suspect]
     Indication: MULTIPLE MYELOMA
     Dosage: 10 MG, 1 IN 1 D, PO : 10 MG, HS X 21 DAYS, PO
     Route: 048
     Dates: start: 20110801
  17. REVLIMID [Suspect]
     Indication: MULTIPLE MYELOMA
     Dosage: 10 MG, 1 IN 1 D, PO : 10 MG, HS X 21 DAYS, PO
     Route: 048
     Dates: start: 20110322, end: 20110529
  18. DURAGESIC-100 [Concomitant]

REACTIONS (2)
  - CELLULITIS [None]
  - ACUTE PULMONARY OEDEMA [None]
